FAERS Safety Report 7392401-7 (Version None)
Quarter: 2011Q1

REPORT INFORMATION
  Report Type: 
  Country: None (occurrence: None)
  Receive Date: 20110330
  Receipt Date: 20110330
  Transmission Date: 20110831
  Serious: Yes (Hospitalization)
  Sender: FDA-Public Use
  Company Number: None

PATIENT
  Age: 58 Year
  Sex: Male

DRUGS (1)
  1. KETOROLAC TROMETHAMINE [Suspect]
     Indication: ARTHRALGIA
     Dosage: 30MG IV
     Route: 042
     Dates: start: 20100419, end: 20100419

REACTIONS (1)
  - INTESTINAL ISCHAEMIA [None]
